FAERS Safety Report 5246538-9 (Version None)
Quarter: 2007Q1

REPORT INFORMATION
  Report Type: 
  Country: None (occurrence: None)
  Receive Date: 20070226
  Receipt Date: 20070220
  Transmission Date: 20070707
  Serious: Yes (Other)
  Sender: FDA-Public Use
  Company Number: GBWYE662514FEB07

PATIENT
  Sex: Male

DRUGS (4)
  1. EFFEXOR XR [Suspect]
     Dosage: 150 MG (UNKNOWN FREQUENCY)
     Route: 048
  2. EFFEXOR XR [Suspect]
     Dosage: 75MG FREQUENCY UNKNOWN
     Route: 048
  3. CARDURA [Concomitant]
     Dosage: UNKNOWN
  4. ABILIFY [Concomitant]
     Dosage: UNKNOWN

REACTIONS (2)
  - ANGIOEDEMA [None]
  - RASH [None]
